FAERS Safety Report 15146772 (Version 1)
Quarter: 2018Q3

REPORT INFORMATION
  Report Type: Spontaneous
  Country: US (occurrence: US)
  Receive Date: 20180716
  Receipt Date: 20180716
  Transmission Date: 20181010
  Serious: Yes (Other)
  Sender: FDA-Public Use
  Company Number: US-STRIDES ARCOLAB LIMITED-2018SP002908

PATIENT

DRUGS (2)
  1. PREDNISONE. [Concomitant]
     Active Substance: PREDNISONE
     Indication: PEMPHIGUS
     Dosage: LOW DOSE (2.5 MG TO 20 MG PER DAY)
     Route: 048
  2. MYCOPHENOLATE MOFETIL. [Suspect]
     Active Substance: MYCOPHENOLATE MOFETIL
     Indication: PEMPHIGUS
     Dosage: UNKNOWN
     Route: 065

REACTIONS (1)
  - Drug ineffective for unapproved indication [Unknown]
